FAERS Safety Report 4303261-2 (Version None)
Quarter: 2004Q1

REPORT INFORMATION
  Report Type: 
  Country: None (occurrence: None)
  Receive Date: 20040223
  Receipt Date: 20040217
  Transmission Date: 20041129
  Serious: Yes (Other)
  Sender: FDA-Public Use
  Company Number: 2004199221JP

PATIENT
  Age: 80 Year

DRUGS (3)
  1. HALCION [Suspect]
     Dosage: 0.25 MG, PRN, ORAL
     Route: 048
  2. NORVASC [Concomitant]
  3. DIOVAN [Concomitant]

REACTIONS (2)
  - DEPRESSED LEVEL OF CONSCIOUSNESS [None]
  - ROAD TRAFFIC ACCIDENT [None]
